FAERS Safety Report 11143859 (Version 1)
Quarter: 2015Q2

REPORT INFORMATION
  Report Type: Spontaneous
  Country: NO (occurrence: NO)
  Receive Date: 20150528
  Receipt Date: 20150528
  Transmission Date: 20150821
  Serious: Yes (Disabling)
  Sender: FDA-Public Use
  Company Number: NO-JNJFOC-20150514953

PATIENT
  Age: 43 Year
  Sex: Male

DRUGS (3)
  1. IMUREL [Concomitant]
     Active Substance: AZATHIOPRINE SODIUM
     Indication: COLITIS ULCERATIVE
     Route: 048
     Dates: start: 201409
  2. REMICADE [Suspect]
     Active Substance: INFLIXIMAB
     Indication: COLITIS ULCERATIVE
     Route: 042
     Dates: start: 20150106
  3. REMICADE [Suspect]
     Active Substance: INFLIXIMAB
     Indication: COLITIS ULCERATIVE
     Route: 042
     Dates: start: 20141223

REACTIONS (9)
  - Malaise [Recovering/Resolving]
  - Epstein-Barr virus antibody positive [Unknown]
  - Hypoacusis [Recovered/Resolved]
  - Pyrexia [Recovering/Resolving]
  - Sluggishness [Recovering/Resolving]
  - Oropharyngeal pain [Recovering/Resolving]
  - Lymphadenopathy [Recovering/Resolving]
  - Tinnitus [Recovered/Resolved]
  - Vertigo [Recovered/Resolved]

NARRATIVE: CASE EVENT DATE: 201412
